FAERS Safety Report 6985407-0 (Version None)
Quarter: 2010Q3

REPORT INFORMATION
  Report Type: 
  Country: None (occurrence: None)
  Receive Date: 20100915
  Receipt Date: 20100903
  Transmission Date: 20110219
  Serious: Yes (Hospitalization)
  Sender: FDA-Public Use
  Company Number: A0776958A

PATIENT
  Age: 63 Year
  Sex: Male
  Weight: 136.4 kg

DRUGS (6)
  1. AVANDIA [Suspect]
     Indication: DIABETES MELLITUS
     Dosage: 4MG TWICE PER DAY
     Route: 048
  2. LIPITOR [Concomitant]
  3. OMEPRAZOLE [Concomitant]
  4. LOPRESSOR [Concomitant]
  5. AVAPRO [Concomitant]
  6. GLUCOPHAGE [Concomitant]

REACTIONS (4)
  - CARDIAC ARREST [None]
  - CARDIAC FAILURE CONGESTIVE [None]
  - ISCHAEMIC CARDIOMYOPATHY [None]
  - MYOCARDIAL INFARCTION [None]
